FAERS Safety Report 9753848 (Version 2)
Quarter: 2015Q3

REPORT INFORMATION
  Report Type: Spontaneous
  Country: US (occurrence: US)
  Receive Date: 20131213
  Receipt Date: 20150805
  Transmission Date: 20151125
  Serious: Yes (Hospitalization)
  Sender: FDA-Public Use
  Company Number: US-GILEAD-2010-0027560

PATIENT
  Age: 80 Year
  Sex: Male

DRUGS (8)
  1. LETAIRIS [Suspect]
     Active Substance: AMBRISENTAN
     Indication: PULMONARY ARTERIAL HYPERTENSION
     Route: 048
     Dates: start: 20091103, end: 20100221
  2. METOPROLOL [Concomitant]
     Active Substance: METOPROLOL
  3. AMLODEPINE [Concomitant]
  4. PEG [Concomitant]
     Active Substance: POLYETHYLENE GLYCOLS
  5. LISINOPRIL. [Concomitant]
     Active Substance: LISINOPRIL
  6. OMEPRAZOLE. [Concomitant]
     Active Substance: OMEPRAZOLE
  7. FUROSEMIDE. [Concomitant]
     Active Substance: FUROSEMIDE
  8. LIPITOR [Concomitant]
     Active Substance: ATORVASTATIN CALCIUM

REACTIONS (1)
  - Fluid retention [Unknown]

NARRATIVE: CASE EVENT DATE: 20100209
